FAERS Safety Report 13416320 (Version 1)
Quarter: 2017Q2

REPORT INFORMATION
  Report Type: Spontaneous
  Country: US (occurrence: US)
  Receive Date: 20170406
  Receipt Date: 20170406
  Transmission Date: 20170830
  Serious: No
  Sender: FDA-Public Use
  Company Number: US-BAYER-2017-066223

PATIENT
  Sex: Female

DRUGS (1)
  1. CLARITIN [Suspect]
     Active Substance: LORATADINE
     Dosage: UNK

REACTIONS (5)
  - Abnormal behaviour [Recovered/Resolved]
  - Mood altered [None]
  - Abnormal behaviour [Unknown]
  - Screaming [Unknown]
  - Crying [Unknown]
